FAERS Safety Report 24784062 (Version 2)
Quarter: 2025Q1

REPORT INFORMATION
  Report Type: Spontaneous
  Country: NP (occurrence: NP)
  Receive Date: 20241227
  Receipt Date: 20250101
  Transmission Date: 20250409
  Serious: Yes (Life-Threatening, Hospitalization)
  Sender: BOEHRINGER INGELHEIM
  Company Number: NP-MLMSERVICE-20241218-PI311402-00303-1

PATIENT
  Age: 90 Year
  Sex: Female

DRUGS (7)
  1. TELMISARTAN [Suspect]
     Active Substance: TELMISARTAN
     Indication: Hypertension
  2. AMLODIPINE [Suspect]
     Active Substance: AMLODIPINE BESYLATE
     Indication: Hypertension
  3. BISOPROLOL [Suspect]
     Active Substance: BISOPROLOL
     Indication: Heart failure with preserved ejection fraction
  4. FUROSEMIDE [Suspect]
     Active Substance: FUROSEMIDE
     Indication: Heart failure with preserved ejection fraction
     Dosage: FUROSEMIDE/SPIRONOLACTONE 20/50?MG ONCE DAILY
  5. ATORVASTATIN [Concomitant]
     Active Substance: ATORVASTATIN
     Indication: Heart failure with preserved ejection fraction
  6. METFORMIN [Concomitant]
     Active Substance: METFORMIN HYDROCHLORIDE
     Indication: Type 2 diabetes mellitus
  7. ASPIRIN [Concomitant]
     Active Substance: ASPIRIN
     Indication: Heart failure with preserved ejection fraction

REACTIONS (3)
  - Metabolic acidosis [Recovering/Resolving]
  - BRASH syndrome [Recovering/Resolving]
  - Pleural effusion [Recovering/Resolving]
